FAERS Safety Report 8776480 (Version 1)
Quarter: 2012Q4

REPORT INFORMATION
  Report Type: 
  Country: DE (occurrence: DE)
  Receive Date: 20120910
  Receipt Date: 20120910
  Transmission Date: 20130627
  Serious: Yes (Congenital Anomaly, Other)
  Sender: FDA-Public Use
  Company Number: GXKR2012DE002831

PATIENT

DRUGS (5)
  1. LAMOTRIGINE [Suspect]
     Dosage: Maternal dose: 300 mg/d/gw 10-11: 225mg/d; gw  10-12: 250mg/d; gw 12-13: 275 mg/; gw 13-15: 300mg/d
     Route: 064
  2. VIMPAT [Suspect]
     Dosage: Maternal dose:250mg/d,gw10-11:250mg/d; gw11-12:200mg/d; gw12-13:150mg/d;gw13-14:100mg/d;gw14-15:50mg
     Route: 064
  3. ANTIEPILEPTICS [Concomitant]
     Dosage: Maternal dose: 200 mg/d Zebinix (eslicarbazepine)
     Route: 064
  4. FOLIC ACID [Concomitant]
     Dosage: Maternal dose: 0.8 [mg/d (to 0.4) ]
     Route: 064
  5. OXYTOCIN [Concomitant]
     Dosage: Maternal dose UKN
     Route: 064

REACTIONS (3)
  - Atrial septal defect [Recovered/Resolved]
  - Directional Doppler flow tests abnormal [Recovered/Resolved]
  - Small for dates baby [Unknown]
